FAERS Safety Report 10505309 (Version 1)
Quarter: 2014Q3

REPORT INFORMATION
  Report Type: Spontaneous
  Country: US (occurrence: None)
  Receive Date: 20140915
  Receipt Date: 20140915
  Transmission Date: 20150326
  Serious: Yes (Other)
  Sender: FDA-Public Use
  Company Number: 2013-US-001441

PATIENT
  Age: 47 Year
  Sex: Male

DRUGS (2)
  1. XANAX [Suspect]
     Active Substance: ALPRAZOLAM
  2. XYREM [Suspect]
     Active Substance: SODIUM OXYBATE
     Indication: SLEEP DISORDER
     Dosage: FOR 1 WEEK
     Route: 048
     Dates: start: 20101228

REACTIONS (5)
  - Off label use [None]
  - Fatigue [None]
  - Suicidal ideation [None]
  - Dysarthria [None]
  - Feeling abnormal [None]
